FAERS Safety Report 4618057-1 (Version None)
Quarter: 2005Q2

REPORT INFORMATION
  Report Type: 
  Country: None (occurrence: None)
  Receive Date: 20050316
  Receipt Date: 20041115
  Transmission Date: 20051028
  Serious: Yes (Other)
  Sender: FDA-Public Use
  Company Number: S04-USA-06055-01

PATIENT
  Age: 59 Year
  Sex: Female

DRUGS (7)
  1. LEXAPRO [Suspect]
     Indication: DEPRESSION
     Dosage: 10 MG QD PO
     Route: 048
     Dates: start: 20040416, end: 20040101
  2. AVANDIA [Concomitant]
  3. LASIX [Concomitant]
  4. SYNTHROD (LEVOTHYROXINE SODIUM) [Concomitant]
  5. NEXIUM [Concomitant]
  6. PERCOCET [Concomitant]
  7. VIOXX [Concomitant]

REACTIONS (2)
  - NEPHROLITHIASIS [None]
  - RENAL FAILURE ACUTE [None]
